FAERS Safety Report 10726757 (Version 2)
Quarter: 2015Q1

REPORT INFORMATION
  Report Type: Spontaneous
  Country: DE (occurrence: DE)
  Receive Date: 20150121
  Receipt Date: 20150206
  Transmission Date: 20150721
  Serious: Yes (Other)
  Sender: FDA-Public Use
  Company Number: DE-JNJFOC-20150110637

PATIENT
  Age: 56 Year
  Sex: Male
  Weight: 87 kg

DRUGS (3)
  1. IODINE [Concomitant]
     Active Substance: IODINE
     Route: 065
  2. SIMPONI [Suspect]
     Active Substance: GOLIMUMAB
     Indication: PSORIATIC ARTHROPATHY
     Route: 058
     Dates: start: 20130218
  3. IBUPROFEN. [Concomitant]
     Active Substance: IBUPROFEN
     Dosage: DOSAGE: AS NEEDED.
     Route: 065

REACTIONS (1)
  - Retinal tear [Recovered/Resolved]

NARRATIVE: CASE EVENT DATE: 2014
